FAERS Safety Report 18758620 (Version 1)
Quarter: 2021Q1

REPORT INFORMATION
  Report Type: Report from Study
  Country: JP (occurrence: JP)
  Receive Date: 20210119
  Receipt Date: 20210119
  Transmission Date: 20210419
  Serious: Yes (Life-Threatening, Hospitalization, Other)
  Sender: FDA-Public Use
  Company Number: JP-JNJFOC-A-CH2018-168627

PATIENT
  Age: 76 Year
  Sex: Male

DRUGS (54)
  1. TAKELDA [Concomitant]
     Active Substance: ASPIRIN\LANSOPRAZOLE
     Indication: DUODENAL ULCER
     Route: 048
     Dates: start: 20161111
  2. PLAVIX [Concomitant]
     Active Substance: CLOPIDOGREL BISULFATE
     Indication: ANGINA PECTORIS
     Route: 048
     Dates: start: 20161108, end: 20161215
  3. BISOPROLOL FUMARATE. [Concomitant]
     Active Substance: BISOPROLOL FUMARATE
     Indication: ANGINA PECTORIS
     Route: 048
     Dates: start: 20161111, end: 20170105
  4. LIXIANA [Concomitant]
     Active Substance: EDOXABAN TOSYLATE
     Indication: DEEP VEIN THROMBOSIS
     Route: 048
     Dates: start: 20161113, end: 20161208
  5. CARBOCISTEINE [Concomitant]
     Active Substance: CARBOCYSTEINE
     Route: 048
     Dates: start: 20180223
  6. INOVAN [Concomitant]
     Active Substance: DOPAMINE HYDROCHLORIDE
     Indication: RIGHT VENTRICULAR FAILURE
     Dosage: DOSE UNKNOWN
     Route: 042
     Dates: start: 20161210, end: 20161210
  7. OXYGEN. [Concomitant]
     Active Substance: OXYGEN
     Dosage: DOSE UNKNOWN
     Route: 055
  8. OPSUMIT [Suspect]
     Active Substance: MACITENTAN
     Indication: PULMONARY ARTERIAL HYPERTENSION
     Dosage: 10 MG, QD
     Route: 048
     Dates: start: 20161115, end: 20190318
  9. AMLODIPINE [Concomitant]
     Active Substance: AMLODIPINE BESYLATE
     Indication: HYPERTENSION
     Route: 048
     Dates: start: 20161108, end: 20161215
  10. GLYCOPYRRONIUM BROMIDE;INDACATEROL MALEATE [Concomitant]
     Active Substance: GLYCOPYRROLATE\INDACATEROL MALEATE
     Route: 048
     Dates: end: 20190717
  11. MIYA?BM [Concomitant]
     Active Substance: CLOSTRIDIUM BUTYRICUM SPORES STRAIN M-55
     Indication: CONSTIPATION
     Route: 048
     Dates: start: 20161206, end: 20180201
  12. SPIRONOLACTONE. [Concomitant]
     Active Substance: SPIRONOLACTONE
     Indication: RIGHT VENTRICULAR FAILURE
     Route: 048
     Dates: start: 20161214, end: 20161215
  13. KALIMATE [Concomitant]
     Active Substance: CALCIUM POLYSTYRENE SULFONATE
  14. REVATIO [Concomitant]
     Active Substance: SILDENAFIL CITRATE
     Indication: PULMONARY ARTERIAL HYPERTENSION
     Route: 048
     Dates: start: 20170105
  15. QUETIAPINE FUMARATE. [Concomitant]
     Active Substance: QUETIAPINE FUMARATE
     Indication: DELIRIUM
     Route: 048
     Dates: start: 20161221, end: 20161229
  16. RISPERDAL [Concomitant]
     Active Substance: RISPERIDONE
     Indication: DELIRIUM
     Route: 048
     Dates: start: 20161227, end: 20170119
  17. DOBUPUM [Concomitant]
     Active Substance: DOBUTAMINE HYDROCHLORIDE
     Indication: RIGHT VENTRICULAR FAILURE
     Dosage: DOSE UNKNOWN
     Route: 042
     Dates: start: 20161227, end: 20161228
  18. BROTIZOLAM [Concomitant]
     Active Substance: BROTIZOLAM
     Indication: INSOMNIA
     Dosage: P.R.N
     Route: 048
     Dates: start: 20180205, end: 20180303
  19. BROTIZOLAM [Concomitant]
     Active Substance: BROTIZOLAM
     Indication: INSOMNIA
     Dosage: P.R.N
     Route: 048
     Dates: start: 20180313, end: 20180313
  20. CALONAL [Concomitant]
     Active Substance: ACETAMINOPHEN
     Indication: HEADACHE
     Route: 048
     Dates: start: 20180211, end: 20180215
  21. SUGLAT [Concomitant]
     Active Substance: IPRAGLIFLOZIN L-PROLINE
     Indication: TYPE 2 DIABETES MELLITUS
     Route: 048
     Dates: start: 20180604
  22. VENTAVIS [Suspect]
     Active Substance: ILOPROST
     Indication: PULMONARY ARTERIAL HYPERTENSION
     Dosage: 2.5 UG, Q4HRS
     Route: 055
     Dates: start: 20161125, end: 20161205
  23. GLYCOPYRRONIUM BROMIDE;INDACATEROL MALEATE [Concomitant]
     Active Substance: GLYCOPYRROLATE\INDACATEROL MALEATE
     Route: 055
     Dates: start: 20170331
  24. DIART [Concomitant]
     Active Substance: AZOSEMIDE
     Indication: RIGHT VENTRICULAR FAILURE
     Route: 048
     Dates: start: 20161214, end: 20161229
  25. JARDIANCE [Concomitant]
     Active Substance: EMPAGLIFLOZIN
     Indication: TYPE 2 DIABETES MELLITUS
     Route: 048
     Dates: start: 20161111, end: 20161229
  26. CARBOCISTEINE [Concomitant]
     Active Substance: CARBOCYSTEINE
     Indication: CHRONIC OBSTRUCTIVE PULMONARY DISEASE
     Route: 048
     Dates: start: 20161108
  27. MUCOSOLVAN L [Concomitant]
     Active Substance: AMBROXOL HYDROCHLORIDE
     Indication: CHRONIC OBSTRUCTIVE PULMONARY DISEASE
     Route: 048
     Dates: start: 20161204, end: 20161215
  28. MAGNESIUM OXIDE. [Concomitant]
     Active Substance: MAGNESIUM OXIDE
     Indication: CONSTIPATION
     Route: 048
     Dates: start: 20161207
  29. BELSOMRA [Concomitant]
     Active Substance: SUVOREXANT
     Indication: INSOMNIA
     Route: 048
     Dates: start: 20161221, end: 20161221
  30. ASPARA POTASSIUM [Concomitant]
     Active Substance: POTASSIUM ASPARTATE
  31. PREDNISOLONE. [Concomitant]
     Active Substance: PREDNISOLONE
     Dosage: UNK
     Dates: start: 20161207
  32. BROTIZOLAM [Concomitant]
     Active Substance: BROTIZOLAM
     Dosage: P.R.N
     Route: 048
     Dates: start: 20180324, end: 20180324
  33. UPTRAVI [Concomitant]
     Active Substance: SELEXIPAG
     Route: 048
     Dates: start: 20180209, end: 20180216
  34. JANUVIA [Concomitant]
     Active Substance: SITAGLIPTIN PHOSPHATE
     Indication: TYPE 2 DIABETES MELLITUS
     Route: 048
     Dates: start: 20181001
  35. KALGUT [Concomitant]
     Active Substance: DENOPAMINE
     Route: 048
  36. CANDESARTAN. [Concomitant]
     Active Substance: CANDESARTAN
     Indication: HYPERTENSION
     Route: 048
     Dates: start: 20161111, end: 20161215
  37. SENNOSIDE [SENNOSIDE A+B CALCIUM] [Concomitant]
     Active Substance: SENNOSIDES A AND B
     Indication: CONSTIPATION
     Route: 048
     Dates: start: 20161205, end: 20170125
  38. TOLVAPTAN [Concomitant]
     Active Substance: TOLVAPTAN
     Indication: RIGHT VENTRICULAR FAILURE
     Route: 048
     Dates: start: 20161216, end: 20161222
  39. TANATRIL [Concomitant]
     Active Substance: IMIDAPRIL
     Indication: HYPERTENSION
     Route: 048
     Dates: start: 20161217, end: 20170105
  40. SLOW?K [Concomitant]
     Active Substance: POTASSIUM CHLORIDE
  41. SOLDACTONE [Concomitant]
     Active Substance: CANRENOATE POTASSIUM
     Indication: RIGHT VENTRICULAR FAILURE
     Dosage: DOSE UNKNOWN
     Route: 042
     Dates: start: 20161216, end: 20161223
  42. HUMULIN R [Suspect]
     Active Substance: INSULIN HUMAN
     Indication: TYPE 2 DIABETES MELLITUS
     Dosage: 100 U/ML ? 10 ML
     Route: 042
     Dates: start: 20161211, end: 20161223
  43. LASIX [Suspect]
     Active Substance: FUROSEMIDE
     Indication: RIGHT VENTRICULAR FAILURE
     Dosage: 2 ML, QD ; 20NG2ML/A
     Route: 042
     Dates: start: 20161212, end: 20161222
  44. GLYCOPYRRONIUM BROMIDE;INDACATEROL MALEATE [Concomitant]
     Active Substance: GLYCOPYRROLATE\INDACATEROL MALEATE
     Indication: CHRONIC OBSTRUCTIVE PULMONARY DISEASE
     Route: 055
     Dates: start: 20161108, end: 20170203
  45. DOBUPUM [Concomitant]
     Active Substance: DOBUTAMINE HYDROCHLORIDE
     Indication: RIGHT VENTRICULAR FAILURE
     Dosage: DOSE UNKNOWN
     Route: 042
     Dates: start: 20161210, end: 20161213
  46. UPTRAVI [Concomitant]
     Active Substance: SELEXIPAG
     Indication: PULMONARY ARTERIAL HYPERTENSION
     Route: 048
     Dates: start: 20180205, end: 20180208
  47. UPTRAVI [Concomitant]
     Active Substance: SELEXIPAG
     Route: 048
     Dates: start: 20180217, end: 20180222
  48. UPTRAVI [Concomitant]
     Active Substance: SELEXIPAG
     Route: 048
     Dates: start: 20180223
  49. HUMULIN R [Suspect]
     Active Substance: INSULIN HUMAN
     Dosage: 100 U/M ? 10 ML
     Route: 042
     Dates: start: 20161228, end: 20161228
  50. PITAVASTATIN CALCIUM OD [Concomitant]
     Active Substance: PITAVASTATIN CALCIUM
     Indication: DYSLIPIDAEMIA
     Route: 048
     Dates: start: 20161111, end: 20161215
  51. CARBOCISTEINE [Concomitant]
     Active Substance: CARBOCYSTEINE
     Route: 048
     Dates: end: 20180222
  52. INOVAN [Concomitant]
     Active Substance: DOPAMINE HYDROCHLORIDE
     Indication: RIGHT VENTRICULAR FAILURE
     Dosage: DOSE UNKNOWN
     Route: 042
     Dates: start: 20161227, end: 20161227
  53. BIO?THREE [Concomitant]
     Active Substance: HERBALS
     Indication: CONSTIPATION
     Route: 048
     Dates: start: 20180202
  54. CALONAL [Concomitant]
     Active Substance: ACETAMINOPHEN
     Indication: HEADACHE
     Route: 048
     Dates: start: 20180225, end: 20180225

REACTIONS (11)
  - Haemoptysis [Recovering/Resolving]
  - Mechanical ventilation [Unknown]
  - Respiratory tract infection [Recovering/Resolving]
  - Respiratory tract haemorrhage [Recovering/Resolving]
  - Pneumonia influenzal [Recovering/Resolving]
  - Cough [Recovering/Resolving]
  - Pyrexia [Recovering/Resolving]
  - Acute right ventricular failure [Recovering/Resolving]
  - Pneumonia [Recovering/Resolving]
  - Right ventricular failure [Recovering/Resolving]
  - Hypokalaemia [Recovering/Resolving]

NARRATIVE: CASE EVENT DATE: 20161203
